FAERS Safety Report 7145455-7 (Version None)
Quarter: 2010Q4

REPORT INFORMATION
  Report Type: 
  Country: None (occurrence: None)
  Receive Date: 20101208
  Receipt Date: 20101129
  Transmission Date: 20110411
  Serious: Yes (Hospitalization)
  Sender: FDA-Public Use
  Company Number: US-PFIZER INC-2010161421

PATIENT
  Sex: Female
  Weight: 85.714 kg

DRUGS (3)
  1. DILANTIN [Suspect]
     Indication: CONVULSION
     Dosage: UNK
     Route: 048
     Dates: start: 20000101
  2. FENTANYL [Suspect]
     Indication: PAIN
     Dosage: 25 UG, UNK
     Dates: start: 20101103
  3. FENTANYL [Suspect]
     Dosage: 50 UG, UNK
     Dates: start: 20101008

REACTIONS (4)
  - CONFUSIONAL STATE [None]
  - CONVULSION [None]
  - IRRITABILITY [None]
  - TREMOR [None]
